FAERS Safety Report 16986547 (Version 4)
Quarter: 2020Q1

REPORT INFORMATION
  Report Type: Spontaneous
  Country: US (occurrence: US)
  Receive Date: 20191103
  Receipt Date: 20200303
  Transmission Date: 20200409
  Serious: Yes (Hospitalization)
  Sender: FDA-Public Use
  Company Number: US-SHIRE-US201922441

PATIENT
  Age: 81 Year
  Sex: Female

DRUGS (3)
  1. GATTEX [Suspect]
     Active Substance: TEDUGLUTIDE\WATER
     Dosage: 2.35 UNK
     Route: 058
     Dates: start: 20190704
  2. GATTEX [Suspect]
     Active Substance: TEDUGLUTIDE\WATER
     Indication: SHORT-BOWEL SYNDROME
     Dosage: 2.35 MILLIGRAM, 1X/DAY:QD
     Route: 058
     Dates: start: 20190613
  3. GATTEX [Suspect]
     Active Substance: TEDUGLUTIDE\WATER
     Dosage: 0.2350 UNKNOWN, FREQUENCY 1X/DAY:QD
     Route: 058
     Dates: start: 20190701

REACTIONS (8)
  - Back pain [Unknown]
  - Intervertebral disc protrusion [Unknown]
  - Nausea [Unknown]
  - Hypophagia [Unknown]
  - Product dose omission [Recovered/Resolved]
  - Tremor [Unknown]
  - Hospitalisation [Recovering/Resolving]
  - Food intolerance [Unknown]

NARRATIVE: CASE EVENT DATE: 20190706
